FAERS Safety Report 21082189 (Version 1)
Quarter: 2022Q3

REPORT INFORMATION
  Report Type: Spontaneous
  Country: US (occurrence: US)
  Receive Date: 20220714
  Receipt Date: 20220714
  Transmission Date: 20221027
  Serious: Yes (Death, Other)
  Sender: FDA-Public Use
  Company Number: US-SAGENT PHARMACEUTICALS-2022SAG001469

PATIENT
  Age: 11 Month
  Sex: Female

DRUGS (7)
  1. DECITABINE [Suspect]
     Active Substance: DECITABINE
     Indication: KMT2A gene mutation
     Dosage: 7.5 MG/M2 (DOSE LEVEL 1)
     Route: 042
  2. DECITABINE [Suspect]
     Active Substance: DECITABINE
     Dosage: 10 MG/M2 (DOSE LEVEL 2)
     Route: 042
  3. DECITABINE [Suspect]
     Active Substance: DECITABINE
     Dosage: 15 MG/M2 (DOSE LEVEL 3)
     Route: 042
  4. FLUDARABINE PHOSPHATE [Suspect]
     Active Substance: FLUDARABINE PHOSPHATE
     Indication: KMT2A gene mutation
     Dosage: 30 MG/M2, DAYS 6 TO 10
     Route: 042
  5. VORINOSTAT [Suspect]
     Active Substance: VORINOSTAT
     Indication: KMT2A gene mutation
     Dosage: 180 MG/M2 ONCE DAILY FROM DAYS 1 TO 5
     Route: 042
  6. CYTARABINE [Suspect]
     Active Substance: CYTARABINE
     Indication: KMT2A gene mutation
     Dosage: 2,000 MG/M2,  DAYS 6 TO 10
     Route: 042
  7. FILGRASTIM [Suspect]
     Active Substance: FILGRASTIM
     Indication: KMT2A gene mutation
     Dosage: 5 ?G/KG/DOSE; DAY 5 UNTIL NEUTROPHIL RECOVERY
     Route: 042

REACTIONS (3)
  - Acidosis [Fatal]
  - Sepsis [Unknown]
  - Respiratory failure [Unknown]
